FAERS Safety Report 8810086 (Version 1)
Quarter: 2012Q4

REPORT INFORMATION
  Report Type: Report from Study
  Country: BE (occurrence: BE)
  Receive Date: 20120926
  Receipt Date: 20120926
  Transmission Date: 20130627
  Serious: Yes (Hospitalization)
  Sender: FDA-Public Use
  Company Number: BE-PFIZER INC-2011286797

PATIENT
  Age: 65 Year
  Sex: Female
  Weight: 74.5 kg

DRUGS (4)
  1. EPIRUBICIN HCL [Suspect]
     Indication: BREAST CANCER
     Dosage: 180 mg, 1x/day
     Route: 042
     Dates: start: 20111017, end: 20111017
  2. FLUOROURACIL [Suspect]
     Indication: BREAST CANCER
     Dosage: 900 mg per day
     Route: 042
     Dates: start: 20111017, end: 20111017
  3. BLINDED THERAPY [Suspect]
     Indication: BREAST CANCER
     Dosage: UNK
     Route: 030
     Dates: start: 20111017, end: 20111017
  4. CYCLOPHOSPHAMIDE [Suspect]
     Indication: BREAST CANCER
     Dosage: 900 mg per day
     Route: 042
     Dates: start: 20111017, end: 20111017

REACTIONS (1)
  - Febrile neutropenia [Recovered/Resolved]
